FAERS Safety Report 9580474 (Version 1)
Quarter: 2013Q3

REPORT INFORMATION
  Report Type: Spontaneous
  Country: US (occurrence: None)
  Receive Date: 20130916
  Receipt Date: 20130916
  Transmission Date: 20140515
  Serious: Yes (Other)
  Sender: FDA-Public Use
  Company Number: JPI-P-031231

PATIENT
  Age: 51 Year
  Sex: Male
  Weight: 78.93 kg

DRUGS (12)
  1. XYREM (500 MILLIGRAM/MILLILITERS, SOLUTION) (SODIUM OXYBATE) [Suspect]
     Indication: NARCOLEPSY
     Route: 048
     Dates: start: 201302, end: 2013
  2. LISINOPRIL [Concomitant]
  3. AMPHETAMINE ASPARTATE, AMPHETAMINE SULFATE, DEXTROMAPHETAMINE SACCHARATE, DEXTROAMPHETAMINE SULFATE [Concomitant]
  4. ALBUTEROL [Concomitant]
  5. ASPIRIN [Concomitant]
  6. FLUTAMIDE [Concomitant]
  7. PREDNISONE [Concomitant]
  8. MODAFINIL [Concomitant]
  9. INFLIXIMAB [Concomitant]
  10. MONTELUKAST SODIUM [Concomitant]
  11. NAPROXEN SODIUM [Concomitant]
  12. ACETAMINOPHEN [Concomitant]

REACTIONS (2)
  - Hypertension [None]
  - Musculoskeletal stiffness [None]
